FAERS Safety Report 5034639-X (Version None)
Quarter: 2006Q2

REPORT INFORMATION
  Report Type: 
  Country: None (occurrence: None)
  Receive Date: 20060626
  Receipt Date: 20060619
  Transmission Date: 20061013
  Serious: Yes (Other)
  Sender: FDA-Public Use
  Company Number: DE-MERCK-0606DEU00060

PATIENT
  Age: 67 Year
  Sex: Female
  Weight: 67 kg

DRUGS (4)
  1. FOSAMAX [Suspect]
     Indication: OSTEOPOROSIS
     Route: 048
     Dates: start: 20060119, end: 20060223
  2. ALLOPURINOL [Concomitant]
     Route: 048
     Dates: start: 20050701, end: 20060302
  3. SIMVASTATIN [Concomitant]
     Route: 048
     Dates: end: 20060302
  4. CALCIUM CARBONATE AND CHOLECALCIFEROL [Concomitant]
     Route: 065
     Dates: start: 19950101, end: 20060302

REACTIONS (1)
  - AGRANULOCYTOSIS [None]
